FAERS Safety Report 21126252 (Version 1)
Quarter: 2022Q3

REPORT INFORMATION
  Report Type: Spontaneous
  Country: US (occurrence: None)
  Receive Date: 20220724
  Receipt Date: 20220724
  Transmission Date: 20221027
  Serious: Yes (Other)
  Sender: FDA-Public Use
  Company Number: None

PATIENT
  Sex: 0

DRUGS (1)
  1. MAGNESIUM CITRATE LEMON [Suspect]
     Active Substance: MAGNESIUM CITRATE
     Route: 048
     Dates: start: 20220718, end: 20220720

REACTIONS (2)
  - Abdominal discomfort [None]
  - Dyspepsia [None]

NARRATIVE: CASE EVENT DATE: 20220721
